FAERS Safety Report 18231661 (Version 2)
Quarter: 2020Q3

REPORT INFORMATION
  Report Type: Spontaneous
  Country: DE (occurrence: DE)
  Receive Date: 20200904
  Receipt Date: 20200928
  Transmission Date: 20201103
  Serious: Yes (Disabling, Other)
  Sender: FDA-Public Use
  Company Number: NVSC2020DE240599

PATIENT
  Age: 70 Year
  Sex: Female
  Weight: 70 kg

DRUGS (2)
  1. DOXYCYCLIN 100 ? 1 A PHARMA [Suspect]
     Active Substance: DOXYCYCLINE
     Indication: BORRELIA INFECTION
     Dosage: 200 MG, QD
     Route: 048
     Dates: start: 20200810, end: 20200821
  2. DOXYCYCLIN 100 ? 1 A PHARMA [Suspect]
     Active Substance: DOXYCYCLINE
     Indication: ERYTHEMA MIGRANS
     Dosage: UNK
     Route: 065
     Dates: start: 20200810, end: 20200821

REACTIONS (3)
  - Diabetes mellitus [Not Recovered/Not Resolved]
  - Restlessness [Unknown]
  - Sensory disturbance [Unknown]

NARRATIVE: CASE EVENT DATE: 202008
